FAERS Safety Report 10950249 (Version 5)
Quarter: 2015Q4

REPORT INFORMATION
  Report Type: Spontaneous
  Country: US (occurrence: US)
  Receive Date: 20150324
  Receipt Date: 20151208
  Transmission Date: 20160304
  Serious: Yes (Congenital Anomaly, Other)
  Sender: FDA-Public Use
  Company Number: US-ELI_LILLY_AND_COMPANY-US201503005457

PATIENT

DRUGS (1)
  1. PROZAC [Suspect]
     Active Substance: FLUOXETINE HYDROCHLORIDE
     Indication: PRODUCT USED FOR UNKNOWN INDICATION
     Dosage: UNK UNK, UNKNOWN
     Route: 065

REACTIONS (11)
  - Bone development abnormal [Unknown]
  - Cleft lip and palate [Unknown]
  - Rash [Unknown]
  - Wound infection staphylococcal [Recovered/Resolved]
  - Gastrooesophageal reflux disease [Unknown]
  - Regurgitation [Unknown]
  - Dental caries [Unknown]
  - Wound infection staphylococcal [Unknown]
  - Postoperative wound infection [Unknown]
  - Exposure during pregnancy [Recovered/Resolved]
  - Hypertonia [Unknown]
